FAERS Safety Report 14166125 (Version 1)
Quarter: 2017Q4

REPORT INFORMATION
  Report Type: Spontaneous
  Country: CN (occurrence: CN)
  Receive Date: 20171107
  Receipt Date: 20171107
  Transmission Date: 20180321
  Serious: Yes (Other)
  Sender: FDA-Public Use
  Company Number: CN-BAXTER-2017BAX037388

PATIENT
  Age: 35 Year
  Sex: Male
  Weight: 65 kg

DRUGS (1)
  1. 20% MANNITOL INJECTION [Suspect]
     Active Substance: MANNITOL
     Indication: INTRACRANIAL PRESSURE INCREASED
     Route: 041
     Dates: start: 20170806, end: 20170806

REACTIONS (3)
  - Heart rate increased [Recovering/Resolving]
  - Chills [Recovering/Resolving]
  - Anaphylactoid reaction [Recovering/Resolving]

NARRATIVE: CASE EVENT DATE: 20170806
